FAERS Safety Report 6404137-7 (Version None)
Quarter: 2009Q4

REPORT INFORMATION
  Report Type: 
  Country: None (occurrence: None)
  Receive Date: 20091016
  Receipt Date: 20090921
  Transmission Date: 20100525
  Serious: No
  Sender: FDA-Public Use
  Company Number: US-ALEXION-A200900771

PATIENT
  Sex: Female

DRUGS (15)
  1. SOLIRIS [Suspect]
     Indication: PAROXYSMAL NOCTURNAL HAEMOGLOBINURIA
     Dosage: 600 MG, QW
     Route: 042
     Dates: start: 20090803
  2. SOLIRIS [Suspect]
     Dosage: 900 MG, Q2W
     Route: 042
     Dates: start: 20090831
  3. ALBUTEROL [Concomitant]
     Dosage: 90 MEQ, 2 PUFFS Q4H
  4. HYDROCHLOROTHIAZIDE [Concomitant]
     Dosage: 12.5 MG, QD
  5. OMEPRAZOLE [Concomitant]
     Dosage: 20 MG, BID
  6. OXYCONTIN [Concomitant]
     Dosage: 40 MG, TID
  7. OXYCONTIN [Concomitant]
     Dosage: 20 MG, BID
  8. LORAZEPAM [Concomitant]
     Dosage: 0.5 MG, QD, HS
  9. PRISTIQ [Concomitant]
     Dosage: 50 MG, QD
  10. NITROGLYCERIN [Concomitant]
     Dosage: 0.4 MG, Q5MIN X3 PRN
     Route: 060
  11. SURFAK [Concomitant]
     Dosage: 240 MG, QD, HS
  12. NEURONTIN [Concomitant]
     Dosage: 300 MG, TID
  13. COUMADIN [Concomitant]
     Dosage: 5 MG, QD
     Dates: start: 20090914
  14. FOLIC ACID [Concomitant]
     Dosage: 1 MG, QD
  15. IRON [Concomitant]
     Dosage: 325 MG, QD

REACTIONS (3)
  - ABDOMINAL PAIN [None]
  - HEPATIC PAIN [None]
  - POST HERPETIC NEURALGIA [None]
